FAERS Safety Report 24428339 (Version 2)
Quarter: 2024Q4

REPORT INFORMATION
  Report Type: Spontaneous
  Country: JP (occurrence: JP)
  Receive Date: 20241011
  Receipt Date: 20241112
  Transmission Date: 20250114
  Serious: Yes (Life-Threatening)
  Sender: ELI LILLY AND COMPANY
  Company Number: JP-ELI_LILLY_AND_COMPANY-JP202410000260

PATIENT
  Age: 69 Year
  Sex: Female

DRUGS (3)
  1. VERZENIO [Suspect]
     Active Substance: ABEMACICLIB
     Indication: Breast cancer recurrent
     Dosage: 150 MG, BID
     Route: 048
     Dates: start: 20240815, end: 20240926
  2. LETROZOLE [Concomitant]
     Active Substance: LETROZOLE
     Indication: Breast cancer recurrent
     Dosage: 2.5 MG, DAILY
     Route: 048
     Dates: start: 20240815
  3. DENOSUMAB [Concomitant]
     Active Substance: DENOSUMAB
     Indication: Breast cancer recurrent
     Dosage: 120 MG, OTHER
     Route: 058

REACTIONS (1)
  - Hepatic function abnormal [Recovering/Resolving]

NARRATIVE: CASE EVENT DATE: 20240926
